FAERS Safety Report 7288203-2 (Version None)
Quarter: 2011Q1

REPORT INFORMATION
  Report Type: 
  Country: None (occurrence: None)
  Receive Date: 20110208
  Receipt Date: 20110208
  Transmission Date: 20110831
  Serious: Yes (Hospitalization)
  Sender: FDA-Public Use
  Company Number: None

PATIENT
  Sex: Female
  Weight: 107 kg

DRUGS (5)
  1. CYCLOPHOSPHAMIDE [Suspect]
     Dosage: 1590 MG
  2. PREDNISONE [Suspect]
     Dosage: 400 MG
  3. DOXORUBICIN HYDROCHLORIDE [Suspect]
     Dosage: 106 MG
  4. RITUXIMAB (MOAB C2B8 ANTI CD20, CHIMERIC) [Suspect]
     Dosage: 795 MG
  5. VINCRISTINE SULFATE [Suspect]
     Dosage: 2 MG

REACTIONS (5)
  - CHEST DISCOMFORT [None]
  - DYSPNOEA [None]
  - RESPIRATORY RATE INCREASED [None]
  - DIASTOLIC DYSFUNCTION [None]
  - CHEST X-RAY ABNORMAL [None]
